FAERS Safety Report 4691147-3 (Version None)
Quarter: 2005Q2

REPORT INFORMATION
  Report Type: 
  Country: None (occurrence: None)
  Receive Date: 20050610
  Receipt Date: 20050531
  Transmission Date: 20051028
  Serious: Yes (Life-Threatening, Hospitalization, Other)
  Sender: FDA-Public Use
  Company Number: 2005-05-2125

PATIENT
  Age: 18 Month
  Sex: Male
  Weight: 11 kg

DRUGS (4)
  1. CELESTONE TAB [Suspect]
     Indication: COUGH
     Dosage: ORAL
     Route: 048
     Dates: start: 20050310
  2. CELESTONE TAB [Suspect]
     Indication: RESPIRATORY DISORDER
     Dosage: ORAL
     Route: 048
     Dates: start: 20050310
  3. ADVIL [Suspect]
     Indication: COUGH
     Dates: start: 20050304
  4. AMOXICILLIN [Concomitant]

REACTIONS (16)
  - BACTERIA URINE IDENTIFIED [None]
  - ENTEROBACTER INFECTION [None]
  - GRUNTING [None]
  - LOBAR PNEUMONIA [None]
  - LUNG DISORDER [None]
  - NASAL FLARING [None]
  - NASOPHARYNGEAL DISORDER [None]
  - OTITIS MEDIA ACUTE [None]
  - OXYGEN SATURATION DECREASED [None]
  - PATHOGEN RESISTANCE [None]
  - PLEURAL DISORDER [None]
  - PLEURAL EFFUSION [None]
  - PLEURISY [None]
  - PNEUMOCOCCAL INFECTION [None]
  - PNEUMOTHORAX [None]
  - RESPIRATORY DISORDER [None]
